FAERS Safety Report 7859042-6 (Version None)
Quarter: 2011Q4

REPORT INFORMATION
  Report Type: 
  Country: None (occurrence: None)
  Receive Date: 20111027
  Receipt Date: 20101007
  Transmission Date: 20120403
  Serious: No
  Sender: FDA-Public Use
  Company Number: US-PFIZER INC-US-WYE-H17040710

PATIENT
  Age: 8 Year
  Sex: Male

DRUGS (1)
  1. PREMARIN [Suspect]
     Indication: PRODUCT USED FOR UNKNOWN INDICATION
     Dosage: TWICE DAILY UNK
     Route: 065

REACTIONS (1)
  - OFF LABEL USE [None]
